FAERS Safety Report 20277931 (Version 2)
Quarter: 2022Q1

REPORT INFORMATION
  Report Type: Report from Study
  Country: JP (occurrence: JP)
  Receive Date: 20220103
  Receipt Date: 20220114
  Transmission Date: 20220424
  Serious: Yes (Hospitalization)
  Sender: FDA-Public Use
  Company Number: JP-SA-2021SA431402

PATIENT
  Age: 62 Year
  Sex: Female
  Weight: 53 kg

DRUGS (13)
  1. SARILUMAB [Suspect]
     Active Substance: SARILUMAB
     Indication: Rheumatic disorder
     Dosage: 200 MG, QOW
     Route: 058
     Dates: start: 20201113, end: 20210203
  2. DICLOFENAC SODIUM [Concomitant]
     Active Substance: DICLOFENAC SODIUM
     Indication: Rheumatic disorder
     Dosage: 1 TABLET, QD
     Route: 048
     Dates: start: 20200918, end: 20210322
  3. REBAMIPIDE [Concomitant]
     Active Substance: REBAMIPIDE
     Indication: Gastrointestinal mucosal disorder
     Dosage: 1 TABLET, QD
     Route: 048
     Dates: start: 20200918, end: 20210217
  4. IGURATIMOD [Concomitant]
     Active Substance: IGURATIMOD
     Indication: Rheumatic disorder
     Dosage: 1 TABLET, QD
     Route: 048
     Dates: start: 20200918, end: 20210217
  5. IGURATIMOD [Concomitant]
     Active Substance: IGURATIMOD
     Dosage: 1 DF, QD
     Route: 048
     Dates: start: 20210323
  6. LANSOPRAZOLE [Concomitant]
     Active Substance: LANSOPRAZOLE
     Indication: Gastrointestinal mucosal disorder
     Dosage: 1 TABLET, QD
     Route: 048
     Dates: start: 20200918
  7. LOSARTAN POTASSIUM [Concomitant]
     Active Substance: LOSARTAN POTASSIUM
     Indication: Hypertension
     Dosage: 1 TABLET, QD
     Route: 048
     Dates: start: 20200918, end: 20210217
  8. ELDECALCITOL [Concomitant]
     Active Substance: ELDECALCITOL
     Indication: Osteoporosis
     Dosage: 1 TABLET, QD
     Route: 048
     Dates: start: 20201113, end: 20210217
  9. ELDECALCITOL [Concomitant]
     Active Substance: ELDECALCITOL
     Dosage: 1 DF, QD
     Route: 048
     Dates: start: 20210323
  10. MEDROL [Concomitant]
     Active Substance: METHYLPREDNISOLONE
     Indication: Rheumatic disorder
     Dosage: 1 TABLET, QD
     Route: 048
     Dates: start: 20200918
  11. VOGLIBOSE [Concomitant]
     Active Substance: VOGLIBOSE
     Indication: Diabetes mellitus
     Dosage: 1 TABLET, TID
     Route: 048
     Dates: start: 20200918
  12. TACROLIMUS [Concomitant]
     Active Substance: TACROLIMUS
     Indication: Rheumatic disorder
     Dosage: 1 TABLET, QD
     Route: 048
     Dates: start: 20200918, end: 20210217
  13. TACROLIMUS [Concomitant]
     Active Substance: TACROLIMUS
     Dosage: 1 DF, QD
     Route: 048
     Dates: start: 20210323

REACTIONS (3)
  - Large intestine perforation [Recovered/Resolved]
  - Abdominal pain upper [Recovered/Resolved]
  - Abdominal abscess [Recovered/Resolved]

NARRATIVE: CASE EVENT DATE: 20210217
